FAERS Safety Report 6131229-2 (Version None)
Quarter: 2009Q1

REPORT INFORMATION
  Report Type: 
  Country: None (occurrence: None)
  Receive Date: 20090325
  Receipt Date: 20080312
  Transmission Date: 20090719
  Serious: Yes (Disabling)
  Sender: FDA-Public Use
  Company Number: US-BRISTOL-MYERS SQUIBB COMPANY-13986161

PATIENT
  Age: 69 Year
  Sex: Male

DRUGS (2)
  1. ERBITUX [Suspect]
     Indication: COLON CANCER STAGE IV
     Dosage: LOADING DOSE 400 MG/M2
     Route: 042
     Dates: start: 20070906, end: 20071001
  2. IRINOTECAN HCL [Concomitant]

REACTIONS (1)
  - DERMATITIS ACNEIFORM [None]
